FAERS Safety Report 11933216 (Version 2)
Quarter: 2016Q1

REPORT INFORMATION
  Report Type: Spontaneous
  Country: US (occurrence: US)
  Receive Date: 20160121
  Receipt Date: 20160122
  Transmission Date: 20160526
  Serious: Yes (Other)
  Sender: FDA-Public Use
  Company Number: US-ROCHE-1697227

PATIENT
  Sex: Female

DRUGS (2)
  1. ESBRIET [Suspect]
     Active Substance: PIRFENIDONE
     Dosage: 2 CAPSULES
     Route: 065
  2. ESBRIET [Suspect]
     Active Substance: PIRFENIDONE
     Indication: IDIOPATHIC PULMONARY FIBROSIS
     Route: 065

REACTIONS (9)
  - Nausea [Recovered/Resolved]
  - Migraine [Unknown]
  - Blindness day [Unknown]
  - Atrial fibrillation [Unknown]
  - Vision blurred [Unknown]
  - Hypertension [Unknown]
  - Cerebral infarction [Unknown]
  - Ejection fraction decreased [Not Recovered/Not Resolved]
  - Fatigue [Recovering/Resolving]
